FAERS Safety Report 24015836 (Version 1)
Quarter: 2024Q2

REPORT INFORMATION
  Report Type: Spontaneous
  Country: PT (occurrence: PT)
  Receive Date: 20240626
  Receipt Date: 20240626
  Transmission Date: 20240716
  Serious: Yes (Life-Threatening, Other)
  Sender: FDA-Public Use
  Company Number: None

PATIENT
  Age: 61 Year
  Sex: Female
  Weight: 50 kg

DRUGS (3)
  1. KETOROLAC [Suspect]
     Active Substance: KETOROLAC TROMETHAMINE
     Dosage: 30 MG (MILLIGRAM) EVERY 8 HOURS (DOSAGE TEXT: 30 MG Q8H) (DOSAGE FORM: SOLUTION FOR INJECTION)
     Route: 042
     Dates: start: 20240409, end: 20240513
  2. METAMIZOLE MAGNESIUM [Suspect]
     Active Substance: METAMIZOLE MAGNESIUM
     Dosage: 2 GRAM EVERY 8 HOURS (DOSAGE TEXT: 2 G, Q8H)
     Route: 042
     Dates: start: 20240409, end: 20240506
  3. CEFTRIAXONE [Suspect]
     Active Substance: CEFTRIAXONE\CEFTRIAXONE SODIUM
     Dosage: 2 GRAM, QD (DOSAGE TEXT: 2G Q8H)
     Route: 042
     Dates: start: 20240417, end: 20240513

REACTIONS (1)
  - Neutropenia [Recovered/Resolved]

NARRATIVE: CASE EVENT DATE: 20240512
